FAERS Safety Report 10863869 (Version 1)
Quarter: 2015Q1

REPORT INFORMATION
  Report Type: Spontaneous
  Country: US (occurrence: US)
  Receive Date: 20150223
  Receipt Date: 20150223
  Transmission Date: 20150721
  Serious: No
  Sender: FDA-Public Use
  Company Number: US-AMGEN-USASP2014012779

PATIENT
  Age: 64 Year
  Sex: Female

DRUGS (1)
  1. ENBREL [Suspect]
     Active Substance: ETANERCEPT
     Indication: RHEUMATOID ARTHRITIS
     Dosage: UNK
     Route: 065
     Dates: start: 20090507

REACTIONS (6)
  - Hypersensitivity [Unknown]
  - Nausea [Unknown]
  - Benign neoplasm [Unknown]
  - Malaise [Unknown]
  - Vomiting [Unknown]
  - Visual impairment [Unknown]
